FAERS Safety Report 25093966 (Version 2)
Quarter: 2025Q2

REPORT INFORMATION
  Report Type: Spontaneous
  Country: JP (occurrence: JP)
  Receive Date: 20250319
  Receipt Date: 20250417
  Transmission Date: 20250716
  Serious: Yes (Death, Hospitalization)
  Sender: MYLAN
  Company Number: JP-MYE-2025M1021606AA

PATIENT
  Age: 80 Year
  Sex: Male

DRUGS (12)
  1. PREGABALIN [Suspect]
     Active Substance: PREGABALIN
     Indication: Post herpetic neuralgia
     Dosage: 25 MILLIGRAM, QD
     Dates: start: 20250212, end: 20250310
  2. PREGABALIN [Suspect]
     Active Substance: PREGABALIN
     Dosage: 25 MILLIGRAM, QD
     Route: 048
     Dates: start: 20250212, end: 20250310
  3. PREGABALIN [Suspect]
     Active Substance: PREGABALIN
     Dosage: 25 MILLIGRAM, QD
     Route: 048
     Dates: start: 20250212, end: 20250310
  4. PREGABALIN [Suspect]
     Active Substance: PREGABALIN
     Dosage: 25 MILLIGRAM, QD
     Dates: start: 20250212, end: 20250310
  5. ACETAMINOPHEN\TRAMADOL HYDROCHLORIDE [Suspect]
     Active Substance: ACETAMINOPHEN\TRAMADOL HYDROCHLORIDE
     Indication: Post herpetic neuralgia
     Dates: start: 20250212, end: 20250312
  6. ACETAMINOPHEN\TRAMADOL HYDROCHLORIDE [Suspect]
     Active Substance: ACETAMINOPHEN\TRAMADOL HYDROCHLORIDE
     Route: 048
     Dates: start: 20250212, end: 20250312
  7. ACETAMINOPHEN\TRAMADOL HYDROCHLORIDE [Suspect]
     Active Substance: ACETAMINOPHEN\TRAMADOL HYDROCHLORIDE
     Route: 048
     Dates: start: 20250212, end: 20250312
  8. ACETAMINOPHEN\TRAMADOL HYDROCHLORIDE [Suspect]
     Active Substance: ACETAMINOPHEN\TRAMADOL HYDROCHLORIDE
     Dates: start: 20250212, end: 20250312
  9. TAVNEOS [Suspect]
     Active Substance: AVACOPAN
     Indication: Anti-neutrophil cytoplasmic antibody positive vasculitis
     Dates: start: 20250113, end: 20250310
  10. TAVNEOS [Suspect]
     Active Substance: AVACOPAN
     Route: 048
     Dates: start: 20250113, end: 20250310
  11. TAVNEOS [Suspect]
     Active Substance: AVACOPAN
     Route: 048
     Dates: start: 20250113, end: 20250310
  12. TAVNEOS [Suspect]
     Active Substance: AVACOPAN
     Dates: start: 20250113, end: 20250310

REACTIONS (1)
  - Interstitial lung disease [Fatal]

NARRATIVE: CASE EVENT DATE: 20250310
